FAERS Safety Report 8302358-X (Version None)
Quarter: 2012Q2

REPORT INFORMATION
  Report Type: 
  Country: None (occurrence: None)
  Receive Date: 20120420
  Receipt Date: 20120413
  Transmission Date: 20120825
  Serious: Yes (Other)
  Sender: FDA-Public Use
  Company Number: US-JNJFOC-20120407375

PATIENT
  Sex: Female
  Weight: 68.04 kg

DRUGS (3)
  1. STELARA [Suspect]
     Indication: PSORIASIS
     Route: 058
     Dates: start: 20120101
  2. SIMVASTATIN [Concomitant]
     Indication: BLOOD CHOLESTEROL
     Route: 048
     Dates: start: 20120201
  3. SIMVASTATIN [Concomitant]
     Route: 048
     Dates: end: 20120201

REACTIONS (6)
  - ELECTROCARDIOGRAM CHANGE [None]
  - BLOOD CALCIUM INCREASED [None]
  - PSORIASIS [None]
  - NERVOUSNESS [None]
  - BLOOD GLUCOSE INCREASED [None]
  - CARDIAC FLUTTER [None]
